FAERS Safety Report 8845392 (Version 3)
Quarter: 2014Q1

REPORT INFORMATION
  Report Type: Spontaneous
  Country: US (occurrence: US)
  Receive Date: 20121017
  Receipt Date: 20140103
  Transmission Date: 20141002
  Serious: Yes (Hospitalization, Other)
  Sender: FDA-Public Use
  Company Number: US-BAYER-2012-106415

PATIENT
  Age: 19 Year
  Sex: Female
  Weight: 80.73 kg

DRUGS (5)
  1. OCELLA [Suspect]
     Indication: CONTRACEPTION
     Dosage: UNK
     Dates: start: 200906, end: 200910
  2. YASMIN [Suspect]
     Dosage: UNK
     Dates: start: 200908
  3. ERYTHROMYCIN [Concomitant]
     Dosage: 5 MG/GM
     Route: 047
     Dates: start: 20081024, end: 20090601
  4. PROVENTIL [Concomitant]
  5. VICODIN [Concomitant]

REACTIONS (7)
  - Cholecystitis chronic [None]
  - Cholelithiasis [None]
  - Gastric disorder [None]
  - Pain [None]
  - Injury [None]
  - Fear of disease [None]
  - Pain [None]
